FAERS Safety Report 9834282 (Version 1)
Quarter: 2014Q1

REPORT INFORMATION
  Report Type: Spontaneous
  Country: US (occurrence: US)
  Receive Date: 20140122
  Receipt Date: 20140122
  Transmission Date: 20141002
  Serious: Yes (Hospitalization, Other)
  Sender: FDA-Public Use
  Company Number: US-ROCHE-1334407

PATIENT
  Age: 59 Year
  Sex: Female

DRUGS (1)
  1. TNKASE [Suspect]
     Indication: ACUTE MYOCARDIAL INFARCTION
     Route: 042

REACTIONS (2)
  - Infarction [Not Recovered/Not Resolved]
  - Surgical failure [Not Recovered/Not Resolved]
